FAERS Safety Report 6884238-X (Version None)
Quarter: 2010Q3

REPORT INFORMATION
  Report Type: 
  Country: None (occurrence: None)
  Receive Date: 20100729
  Receipt Date: 20070609
  Transmission Date: 20110219
  Serious: No
  Sender: FDA-Public Use
  Company Number: US-PFIZER INC-2007048132

PATIENT
  Sex: Male
  Weight: 59.1 kg

DRUGS (1)
  1. CELEBREX [Suspect]
     Indication: MUSCULOSKELETAL DISORDER
     Dates: start: 20070523

REACTIONS (1)
  - ERECTILE DYSFUNCTION [None]
